FAERS Safety Report 4928567-5 (Version None)
Quarter: 2006Q1

REPORT INFORMATION
  Report Type: 
  Country: None (occurrence: None)
  Receive Date: 20060223
  Receipt Date: 20060213
  Transmission Date: 20060701
  Serious: Yes (Other)
  Sender: FDA-Public Use
  Company Number: 200514624BCC

PATIENT
  Age: 64 Year
  Sex: Female
  Weight: 59.8748 kg

DRUGS (2)
  1. ALEVE (CAPLET) [Suspect]
     Indication: ARTHRITIS
     Dosage: 440 MG, ONCE, ORAL
     Route: 048
     Dates: start: 20051116, end: 20051117
  2. ALEVE (CAPLET) [Suspect]
     Indication: ARTHRITIS
     Dosage: 440 MG, ONCE, ORAL
     Route: 048
     Dates: start: 20051109

REACTIONS (2)
  - BLOOD PRESSURE INCREASED [None]
  - HEADACHE [None]
